FAERS Safety Report 7437608-5 (Version None)
Quarter: 2011Q2

REPORT INFORMATION
  Report Type: 
  Country: None (occurrence: None)
  Receive Date: 20110426
  Receipt Date: 20110418
  Transmission Date: 20111010
  Serious: Yes (Life-Threatening, Hospitalization)
  Sender: FDA-Public Use
  Company Number: DK-ABBOTT-11P-044-0714540-00

PATIENT
  Sex: Male

DRUGS (6)
  1. HUMIRA [Suspect]
     Indication: ANKYLOSING SPONDYLITIS
  2. INFLIXIMAB [Suspect]
     Indication: ANKYLOSING SPONDYLITIS
     Dates: start: 20051125, end: 20100311
  3. PREDNISOLONE [Concomitant]
     Indication: PRODUCT USED FOR UNKNOWN INDICATION
  4. HUMIRA [Suspect]
  5. METHOTREXATE [Concomitant]
     Dosage: 7.5 MG DAILY
  6. METHOTREXATE [Concomitant]
     Indication: URTICARIA
     Dosage: 25 MG DAILY
     Dates: start: 20060101

REACTIONS (11)
  - COUGH [None]
  - ARTHROPATHY [None]
  - THROMBOCYTOPENIA [None]
  - HEPATIC CIRRHOSIS [None]
  - ILL-DEFINED DISORDER [None]
  - BONE MARROW GRANULOMA [None]
  - PROSTATE CANCER [None]
  - BONE MARROW FAILURE [None]
  - PNEUMONIA [None]
  - SARCOIDOSIS [None]
  - INFECTION [None]
